FAERS Safety Report 10111326 (Version 2)
Quarter: 2014Q3

REPORT INFORMATION
  Report Type: Spontaneous
  Country: US (occurrence: None)
  Receive Date: 20140421
  Receipt Date: 20140722
  Transmission Date: 20150326
  Serious: Yes (Other)
  Sender: FDA-Public Use
  Company Number: AEGR000269

PATIENT
  Age: 70 Year
  Sex: Female
  Weight: 59 kg

DRUGS (5)
  1. BRILINTA [Concomitant]
     Active Substance: TICAGRELOR
  2. BYSTOLIC [Concomitant]
     Active Substance: NEBIVOLOL HYDROCHLORIDE
  3. JUXTAPID [Suspect]
     Active Substance: LOMITAPIDE MESYLATE
     Indication: TYPE II HYPERLIPIDAEMIA
     Route: 048
     Dates: start: 20131201, end: 201312
  4. QUINAPRIL (QUINAPRIL HYDROCHLORIDE) [Concomitant]
  5. INDAPAMIDE (INDAPAMIDE) [Concomitant]
     Active Substance: INDAPAMIDE

REACTIONS (3)
  - Nausea [None]
  - Diarrhoea [None]
  - Skin haemorrhage [None]

NARRATIVE: CASE EVENT DATE: 201312
